FAERS Safety Report 23160357 (Version 1)
Quarter: 2023Q4

REPORT INFORMATION
  Report Type: Spontaneous
  Country: CN (occurrence: None)
  Receive Date: 20231108
  Receipt Date: 20231108
  Transmission Date: 20240110
  Serious: Yes (Hospitalization, Other)
  Sender: FDA-Public Use
  Company Number: 2023A250049

PATIENT
  Age: 21518 Day
  Sex: Female

DRUGS (1)
  1. OLAPARIB [Suspect]
     Active Substance: OLAPARIB
     Indication: Neoplasm
     Route: 048
     Dates: start: 20230925, end: 20231013

REACTIONS (4)
  - Myelosuppression [Not Recovered/Not Resolved]
  - Disseminated intravascular coagulation [Unknown]
  - White blood cell count increased [Unknown]
  - Infection [Unknown]

NARRATIVE: CASE EVENT DATE: 20231016
